FAERS Safety Report 23267484 (Version 5)
Quarter: 2024Q3

REPORT INFORMATION
  Report Type: Report from Study
  Country: KR (occurrence: KR)
  Receive Date: 20231206
  Receipt Date: 20240916
  Transmission Date: 20241016
  Serious: Yes (Other)
  Sender: OTSUKA
  Company Number: KR-OTSUKA-2023_028534

PATIENT
  Age: 47 Year
  Sex: Female

DRUGS (8)
  1. TOLVAPTAN [Suspect]
     Active Substance: TOLVAPTAN
     Indication: Congenital cystic kidney disease
     Dosage: 15 MG, QD
     Route: 048
     Dates: start: 20230306, end: 20231113
  2. TOLVAPTAN [Suspect]
     Active Substance: TOLVAPTAN
     Dosage: 15 MG, QD
     Route: 048
     Dates: start: 20230306, end: 20231113
  3. DARBEPOETIN ALFA [Concomitant]
     Active Substance: DARBEPOETIN ALFA
     Indication: Anaemia
     Dosage: UNK, QD (1 SYRN/DAY)
     Route: 058
     Dates: start: 20220905, end: 20230702
  4. DARBEPOETIN ALFA [Concomitant]
     Active Substance: DARBEPOETIN ALFA
     Dosage: UNK, QD (1 SYRN/DAY)
     Route: 058
     Dates: start: 20230802
  5. FERROUS SULFATE MONOHYDRATE [Concomitant]
     Active Substance: FERROUS SULFATE MONOHYDRATE
     Indication: Anaemia
     Dosage: 2 DF, QD (2 TAB/DAY)
     Route: 048
     Dates: start: 20230802
  6. FOLIC ACID [Concomitant]
     Active Substance: FOLIC ACID
     Indication: Anaemia
     Dosage: 1 DF, QD (1 TAB/DAY)
     Route: 048
     Dates: start: 20220207, end: 20230802
  7. FIMASARTAN POTASSIUM TRIHYDRATE [Concomitant]
     Active Substance: FIMASARTAN POTASSIUM TRIHYDRATE
     Indication: Hypertension
     Dosage: 1 DF, QD
     Route: 048
     Dates: start: 20210927, end: 20230612
  8. FIMASARTAN POTASSIUM TRIHYDRATE [Concomitant]
     Active Substance: FIMASARTAN POTASSIUM TRIHYDRATE
     Dosage: UNK, AS NECESSARY (TAB, PRN)
     Route: 048
     Dates: start: 20230904

REACTIONS (4)
  - Renal impairment [Recovering/Resolving]
  - Large intestine polyp [Recovered/Resolved]
  - Renal impairment [Recovered/Resolved]
  - Underdose [Unknown]

NARRATIVE: CASE EVENT DATE: 20230306
